FAERS Safety Report 17277061 (Version 1)
Quarter: 2020Q1

REPORT INFORMATION
  Report Type: Other
  Country: US (occurrence: US)
  Receive Date: 20200116
  Receipt Date: 20200116
  Transmission Date: 20200409
  Serious: Yes (Other)
  Sender: FDA-Public Use
  Company Number: US-EMD SERONO-9139515

PATIENT
  Age: 33 Year
  Sex: Male

DRUGS (1)
  1. RECOMBINANT HUMAN GROWTH HORMONE (RHGH) [Suspect]
     Active Substance: SOMATROPIN
     Indication: BODY MASS INDEX DECREASED
     Route: 058

REACTIONS (4)
  - Arthritis bacterial [Recovered/Resolved]
  - Drug abuse [Unknown]
  - Necrosis [Recovered/Resolved]
  - Staphylococcal infection [Recovered/Resolved]
